FAERS Safety Report 5612333-1 (Version None)
Quarter: 2008Q1

REPORT INFORMATION
  Report Type: 
  Country: None (occurrence: None)
  Receive Date: 20080129
  Receipt Date: 20080116
  Transmission Date: 20080703
  Serious: Yes (Other)
  Sender: FDA-Public Use
  Company Number: 2008000440

PATIENT
  Sex: Male

DRUGS (2)
  1. SUDAFED S.A. [Suspect]
     Dosage: ORAL
     Route: 048
  2. ALCOHOL                     (ALCOHOL) [Suspect]
     Dosage: 4 DRINKS, ORAL
     Route: 048

REACTIONS (3)
  - AMNESIA [None]
  - FEELING OF BODY TEMPERATURE CHANGE [None]
  - SOMNOLENCE [None]
